FAERS Safety Report 4448605-6 (Version None)
Quarter: 2004Q3

REPORT INFORMATION
  Report Type: 
  Country: None (occurrence: None)
  Receive Date: 20040909
  Receipt Date: 20040826
  Transmission Date: 20050211
  Serious: Yes (Life-Threatening, Hospitalization)
  Sender: FDA-Public Use
  Company Number: 239072

PATIENT
  Age: 56 Year
  Sex: Male

DRUGS (8)
  1. NOVONORM(REPAGLINIDE) TABLET, 1.0MG [Suspect]
     Indication: DIABETES MELLITUS NON-INSULIN-DEPENDENT
     Dosage: 1 TAB, BID, PER ORAL
     Route: 048
     Dates: start: 20040524
  2. NOVOMIX 30 PENFILL(INSULIN ASPART) SUSPENSION FOR INJECTION [Concomitant]
  3. METFORMIN HCL [Concomitant]
  4. CORODIL(ENALAPRIL) [Concomitant]
  5. CORODIL (ENALAPRIL0 [Concomitant]
  6. NORVASC    /DEN/(AMLODIPINE BESILATE) [Concomitant]
  7. ZOCOR [Concomitant]
  8. CLARITIN [Concomitant]

REACTIONS (3)
  - FEELING ABNORMAL [None]
  - HYPERHIDROSIS [None]
  - HYPOGLYCAEMIC COMA [None]
